FAERS Safety Report 23348470 (Version 1)
Quarter: 2023Q4

REPORT INFORMATION
  Report Type: Spontaneous
  Country: SE (occurrence: None)
  Receive Date: 20231228
  Receipt Date: 20231228
  Transmission Date: 20240110
  Serious: Yes (Other)
  Sender: FDA-Public Use
  Company Number: 2023A291581

PATIENT
  Age: 81 Year
  Sex: Male
  Weight: 71 kg

DRUGS (7)
  1. DAPAGLIFLOZIN [Suspect]
     Active Substance: DAPAGLIFLOZIN
     Indication: Renal failure
     Dosage: 1X1
     Route: 048
     Dates: start: 20230928, end: 20231204
  2. LOSARTAN/HYDROCHLOROTHIAZIDE STADA [Concomitant]
     Dosage: 1X1
     Dates: end: 20231204
  3. METOPROLOL [Concomitant]
     Active Substance: METOPROLOL
     Dosage: 1X1
  4. METFORMIN [Concomitant]
     Active Substance: METFORMIN HYDROCHLORIDE
     Dosage: 1X1
     Dates: end: 20231204
  5. GLIMEPIRIDE [Concomitant]
     Active Substance: GLIMEPIRIDE
     Dosage: 1X1
     Dates: end: 20231204
  6. PIOGLITAZONE [Concomitant]
     Active Substance: PIOGLITAZONE
     Dates: end: 20231204
  7. ASPIRIN [Concomitant]
     Active Substance: ASPIRIN
     Dosage: 1X1

REACTIONS (1)
  - Renal failure [Recovered/Resolved]

NARRATIVE: CASE EVENT DATE: 20230101
